FAERS Safety Report 7703558-X (Version None)
Quarter: 2011Q3

REPORT INFORMATION
  Report Type: 
  Country: None (occurrence: None)
  Receive Date: 20110823
  Receipt Date: 20110812
  Transmission Date: 20111222
  Serious: Yes (Hospitalization)
  Sender: FDA-Public Use
  Company Number: PHEH2011US01649

PATIENT
  Age: 52 Year
  Sex: Male
  Weight: 88 kg

DRUGS (15)
  1. OMEPRAZOLE [Concomitant]
     Dosage: 40 MG, QD
     Route: 048
     Dates: start: 20090803
  2. ASPIRIN [Concomitant]
     Dosage: UNK
     Route: 048
     Dates: start: 20090803
  3. CARVEDILOL [Concomitant]
     Indication: HYPERTENSION
     Dosage: 100 MG, QD
     Route: 048
     Dates: start: 20090803
  4. CARVEDILOL [Concomitant]
     Indication: CARDIOVASCULAR EVENT PROPHYLAXIS
  5. AMLODIPINE [Concomitant]
     Indication: CARDIOVASCULAR EVENT PROPHYLAXIS
  6. ISOSORBIDE MONONITRATE [Concomitant]
     Indication: CARDIOVASCULAR EVENT PROPHYLAXIS
     Dosage: 120 MG, QD
     Route: 048
     Dates: start: 20090306
  7. PREDNISONE TAB [Concomitant]
     Indication: RENAL TRANSPLANT
     Dosage: 5 MG/5 ML DAILY
     Route: 048
     Dates: start: 20080803
  8. TACROLIMUS [Concomitant]
     Indication: RENAL TRANSPLANT
     Dosage: 2 MG, QD
     Dates: start: 20090803
  9. MYCOPHENOLATE MOFETIL [Concomitant]
     Indication: PROPHYLAXIS AGAINST TRANSPLANT REJECTION
     Dosage: 1000 MG, QD
     Route: 048
     Dates: start: 20090803
  10. DOXAZOSIN MESYLATE [Concomitant]
     Indication: ATHEROSCLEROSIS PROPHYLAXIS
     Dosage: 12 MG, QD
     Dates: start: 20090803
  11. CYCLOSPORINE [Suspect]
     Dosage: 10 MG, PRN
     Dates: start: 20100804
  12. MAGNESIUM SULFATE [Concomitant]
     Dosage: 800 MG, QD
     Dates: start: 20100704
  13. AMLODIPINE [Concomitant]
     Indication: HYPERTENSION
     Dosage: 10 MG, QD
     Route: 048
     Dates: start: 20090803
  14. NITROGLYCERIN [Concomitant]
     Indication: CARDIOVASCULAR EVENT PROPHYLAXIS
     Dosage: 2.5 MG, PRN
     Dates: start: 20090306
  15. CLONIDINE [Concomitant]
     Indication: ATHEROSCLEROSIS PROPHYLAXIS
     Dosage: 3 X 0.3 MG/24 HR DAILY
     Route: 062
     Dates: start: 20090803

REACTIONS (3)
  - ASCITES [None]
  - HERNIA [None]
  - WEIGHT INCREASED [None]
